FAERS Safety Report 5496956-9 (Version None)
Quarter: 2007Q4

REPORT INFORMATION
  Report Type: 
  Country: None (occurrence: None)
  Receive Date: 20071025
  Receipt Date: 20071018
  Transmission Date: 20080405
  Serious: Yes (Other)
  Sender: FDA-Public Use
  Company Number: B0490725A

PATIENT
  Sex: Female

DRUGS (7)
  1. VENTOLIN [Suspect]
     Indication: ASTHMA
     Dosage: 2PUFF AS REQUIRED
     Route: 055
  2. SERETIDE [Concomitant]
     Indication: ASTHMA
     Dosage: 1PUFF TWICE PER DAY
     Route: 055
  3. SINGULAIR [Concomitant]
     Indication: ASTHMA
     Dosage: 10MG AT NIGHT
  4. DIAFORMIN [Concomitant]
     Dosage: 1000MG THREE TIMES PER DAY
  5. PANAFCORT [Concomitant]
     Dosage: 15MG PER DAY
     Dates: start: 20070917
  6. CHLORSIG [Concomitant]
     Indication: CONJUNCTIVITIS
  7. UNKNOWN MEDICATION [Concomitant]
     Dosage: 1SPR AT NIGHT
     Route: 045
     Dates: start: 20070426

REACTIONS (6)
  - COUGH [None]
  - DYSGEUSIA [None]
  - GLOSSODYNIA [None]
  - NAUSEA [None]
  - PHARMACEUTICAL PRODUCT COMPLAINT [None]
  - RETCHING [None]
